FAERS Safety Report 8304672-0 (Version None)
Quarter: 2012Q2

REPORT INFORMATION
  Report Type: 
  Country: None (occurrence: None)
  Receive Date: 20120423
  Receipt Date: 20120417
  Transmission Date: 20120825
  Serious: Yes (Death, Hospitalization, Other)
  Sender: FDA-Public Use
  Company Number: DE-ELI_LILLY_AND_COMPANY-DE201204003734

PATIENT
  Sex: Male
  Weight: 62.4 kg

DRUGS (12)
  1. BEVACIZUMAB [Suspect]
     Indication: NON-SMALL CELL LUNG CANCER
     Dosage: 7.5 MG/KG, ONCE EVERY THREE WEEKS
     Route: 042
     Dates: start: 20111223
  2. CARBOPLATIN [Suspect]
     Indication: NON-SMALL CELL LUNG CANCER
     Dosage: 5 AUC, UNKNOWN
     Route: 065
     Dates: start: 20111223
  3. FLUVASTATIN SODIUM [Concomitant]
     Dosage: 80 MG, UNK
     Dates: start: 20120326
  4. FOLCUR [Concomitant]
     Dosage: 0.4 MG, UNK
     Dates: start: 20111201
  5. ALFUZOSIN HCL [Concomitant]
     Dosage: 10 MG, UNK
     Dates: end: 20120326
  6. PEMETREXED [Suspect]
     Indication: NON-SMALL CELL LUNG CANCER
     Dosage: 500 MG/M2, EVERY THREE WEEKS
     Route: 042
     Dates: start: 20111223, end: 20120329
  7. VITAMIN B-12 [Concomitant]
     Dosage: UNK
     Dates: start: 20111201
  8. ASPIRIN [Concomitant]
     Dosage: 100 MG, UNK
     Dates: start: 20110101
  9. METOPROLOL TARTRATE AND HYDROCHLOROTHIAZIDE [Concomitant]
     Dosage: 23.75 MG, UNK
     Dates: end: 20120326
  10. VERTIGO VOMEX [Concomitant]
     Dosage: 120 MG, UNK
     Dates: end: 20120326
  11. MOVICOL                            /01625101/ [Concomitant]
     Dosage: UNK
     Dates: end: 20120326
  12. CALCIMAGON [Concomitant]
     Dosage: UNK
     Dates: start: 20120326

REACTIONS (10)
  - WEIGHT DECREASED [None]
  - PANCYTOPENIA [None]
  - DECREASED APPETITE [None]
  - DEHYDRATION [None]
  - ASTHENIA [None]
  - THROMBOCYTOPENIA [None]
  - GENERAL PHYSICAL HEALTH DETERIORATION [None]
  - EPISTAXIS [None]
  - NEUTROPENIA [None]
  - GINGIVITIS [None]
